FAERS Safety Report 11655977 (Version 2)
Quarter: 2015Q4

REPORT INFORMATION
  Report Type: Spontaneous
  Country: US (occurrence: US)
  Receive Date: 20151023
  Receipt Date: 20151102
  Transmission Date: 20160304
  Serious: No
  Sender: FDA-Public Use
  Company Number: US-ALLERGAN-1503353US

PATIENT
  Sex: Female

DRUGS (1)
  1. AZELEX [Suspect]
     Active Substance: AZELAIC ACID
     Indication: SKIN DISORDER
     Dosage: UNK, QD
     Route: 061
     Dates: start: 20150219, end: 20150220

REACTIONS (1)
  - Application site pain [Unknown]
